FAERS Safety Report 13486405 (Version 1)
Quarter: 2017Q2

REPORT INFORMATION
  Report Type: Spontaneous
  Country: US (occurrence: US)
  Receive Date: 20170426
  Receipt Date: 20170426
  Transmission Date: 20170830
  Serious: Yes (Other)
  Sender: FDA-Public Use
  Company Number: US-PFIZER INC-2017173498

PATIENT
  Age: 32 Year
  Sex: Female
  Weight: 82 kg

DRUGS (1)
  1. LO/OVRAL-28 [Suspect]
     Active Substance: ETHINYL ESTRADIOL\NORGESTREL
     Indication: CONTRACEPTION
     Dosage: UNK
     Dates: start: 200705, end: 200706

REACTIONS (2)
  - Tongue ulceration [Unknown]
  - Seizure [Recovered/Resolved]

NARRATIVE: CASE EVENT DATE: 200706
